FAERS Safety Report 23696993 (Version 5)
Quarter: 2025Q2

REPORT INFORMATION
  Report Type: Report from Study
  Country: US (occurrence: US)
  Receive Date: 20240402
  Receipt Date: 20250624
  Transmission Date: 20250716
  Serious: Yes (Life-Threatening, Hospitalization, Other)
  Sender: PFIZER
  Company Number: US-PFIZER INC-PV202400042005

PATIENT
  Age: 55 Year
  Sex: Female
  Weight: 82.358 kg

DRUGS (33)
  1. MEKTOVI [Suspect]
     Active Substance: BINIMETINIB
     Indication: Metastatic malignant melanoma
     Dosage: 45 MG, 2X/DAY
     Route: 048
     Dates: start: 202401, end: 20240307
  2. MEKTOVI [Suspect]
     Active Substance: BINIMETINIB
     Dosage: 45 MG, 2X/DAY
     Route: 048
     Dates: start: 20240202, end: 20250416
  3. MEKTOVI [Suspect]
     Active Substance: BINIMETINIB
     Dosage: TAKE 3 TABLETS (45MG) BY MOUTH TWICE DAILY
     Route: 048
     Dates: start: 20240203, end: 20250415
  4. MEKTOVI [Suspect]
     Active Substance: BINIMETINIB
     Dates: start: 20250514
  5. MEKTOVI [Suspect]
     Active Substance: BINIMETINIB
     Dosage: 45 MG, 2X/DAY
     Dates: start: 20250523
  6. BRAFTOVI [Suspect]
     Active Substance: ENCORAFENIB
     Indication: Metastatic malignant melanoma
     Dosage: 450 MG, 1X/DAY
     Route: 048
     Dates: start: 202401, end: 20240307
  7. BRAFTOVI [Suspect]
     Active Substance: ENCORAFENIB
     Dosage: TAKE 3 CAPSULES (225MG) DAILY
     Route: 048
     Dates: start: 20240202, end: 20250416
  8. BRAFTOVI [Suspect]
     Active Substance: ENCORAFENIB
     Dosage: TAKE 6 CAPSULES (450MG) BY MOUTH DAILY
     Route: 048
     Dates: start: 20240203, end: 20250415
  9. BRAFTOVI [Suspect]
     Active Substance: ENCORAFENIB
     Dates: start: 20250514
  10. BRAFTOVI [Suspect]
     Active Substance: ENCORAFENIB
     Dosage: 450 MG, DAILY
     Dates: start: 20250523
  11. ALPRAZOLAM [Concomitant]
     Active Substance: ALPRAZOLAM
  12. AMITRIPTYLINE [Concomitant]
     Active Substance: AMITRIPTYLINE
  13. BUPROPION [Concomitant]
     Active Substance: BUPROPION
  14. BYSTOLIC [Concomitant]
     Active Substance: NEBIVOLOL HYDROCHLORIDE
  15. COLACE [Concomitant]
     Active Substance: DOCUSATE SODIUM
  16. ONDANSETRON [Concomitant]
     Active Substance: ONDANSETRON
  17. PANTOPRAZOLE [Concomitant]
     Active Substance: PANTOPRAZOLE
  18. POTASSIUM CHLORIDE [Concomitant]
     Active Substance: POTASSIUM CHLORIDE
  19. PROMETHAZINE [Concomitant]
     Active Substance: PROMETHAZINE HYDROCHLORIDE
  20. TRAMADOL [Concomitant]
     Active Substance: TRAMADOL
  21. VALACYCLOVIR [Concomitant]
     Active Substance: VALACYCLOVIR HYDROCHLORIDE
  22. ZINC [Concomitant]
     Active Substance: ZINC
  23. MELOXICAM [Concomitant]
     Active Substance: MELOXICAM
     Dosage: 15 MG, 1X/DAY
     Route: 048
     Dates: start: 20180707, end: 20240307
  24. ONDANSETRON [Concomitant]
     Active Substance: ONDANSETRON
  25. POTASSIUM [Concomitant]
     Active Substance: POTASSIUM
  26. CARISOPRODOL [Concomitant]
     Active Substance: CARISOPRODOL
  27. EMGALITY [Concomitant]
     Active Substance: GALCANEZUMAB-GNLM
  28. VITAMIN D NOS [Concomitant]
     Active Substance: CHOLECALCIFEROL\ERGOCALCIFEROL
  29. COMPAZINE [Concomitant]
     Active Substance: PROCHLORPERAZINE MALEATE
  30. DEXAMETHASONE [Concomitant]
     Active Substance: DEXAMETHASONE
  31. PROCHLORPERAZINE EDISYLATE [Concomitant]
     Active Substance: PROCHLORPERAZINE EDISYLATE
  32. VITAMIN D3 [Concomitant]
     Active Substance: CHOLECALCIFEROL
  33. BUPROPION [Concomitant]
     Active Substance: BUPROPION

REACTIONS (7)
  - Gastrointestinal ulcer haemorrhage [Recovering/Resolving]
  - Blood loss anaemia [Recovering/Resolving]
  - Diarrhoea [Unknown]
  - Metastases to central nervous system [Not Recovered/Not Resolved]
  - Blood bilirubin decreased [Unknown]
  - Muscle spasms [Not Recovered/Not Resolved]
  - Arthralgia [Not Recovered/Not Resolved]

NARRATIVE: CASE EVENT DATE: 20240301
